FAERS Safety Report 18697884 (Version 1)
Quarter: 2021Q1

REPORT INFORMATION
  Report Type: Spontaneous
  Country: US (occurrence: US)
  Receive Date: 20210105
  Receipt Date: 20210105
  Transmission Date: 20210419
  Serious: Yes (Death, Other)
  Sender: FDA-Public Use
  Company Number: US-SA-2020SA378034

PATIENT

DRUGS (1)
  1. ZANTAC [Suspect]
     Active Substance: RANITIDINE HYDROCHLORIDE
     Dosage: UNK
     Dates: start: 200801, end: 201904

REACTIONS (3)
  - Bladder cancer [Fatal]
  - Neoplasm malignant [Unknown]
  - Hepatic cancer [Fatal]

NARRATIVE: CASE EVENT DATE: 20180810
